FAERS Safety Report 6170048-8 (Version None)
Quarter: 2009Q2

REPORT INFORMATION
  Report Type: 
  Country: None (occurrence: None)
  Receive Date: 20090424
  Receipt Date: 20081229
  Transmission Date: 20091009
  Serious: No
  Sender: FDA-Public Use
  Company Number: ALL1-2008-03638

PATIENT
  Sex: Male
  Weight: 29 kg

DRUGS (3)
  1. VYVANSE [Suspect]
     Indication: ATTENTION DEFICIT/HYPERACTIVITY DISORDER
     Dosage: 20 MG, 1X/DAY QD, ORAL; 30 MG, 1X/DAY QD, ORAL
     Route: 048
     Dates: start: 20081201, end: 20081201
  2. VYVANSE [Suspect]
     Indication: ATTENTION DEFICIT/HYPERACTIVITY DISORDER
     Dosage: 20 MG, 1X/DAY QD, ORAL; 30 MG, 1X/DAY QD, ORAL
     Route: 048
     Dates: start: 20081201
  3. RISPERDAL [Concomitant]

REACTIONS (1)
  - DRUG INEFFECTIVE [None]
